FAERS Safety Report 14297176 (Version 1)
Quarter: 2017Q4

REPORT INFORMATION
  Report Type: Spontaneous
  Country: US (occurrence: US)
  Receive Date: 20171218
  Receipt Date: 20171218
  Transmission Date: 20180321
  Serious: No
  Sender: FDA-Public Use
  Company Number: US-ABBVIE-17P-163-1987479-00

PATIENT
  Age: 69 Year
  Sex: Female

DRUGS (3)
  1. FENOFIBRIC ACID. [Suspect]
     Active Substance: FENOFIBRIC ACID
     Indication: BLOOD CHOLESTEROL INCREASED
     Dosage: DELAYED RELEASE CAPSULES (GENERIC)
     Route: 048
     Dates: start: 2016, end: 2016
  2. FENOFIBRIC ACID. [Suspect]
     Active Substance: FENOFIBRIC ACID
     Dosage: RESTARTED AFTER ONE WEEK
     Route: 048
     Dates: start: 2016, end: 2016
  3. TRILIPIX [Concomitant]
     Active Substance: FENOFIBRIC ACID
     Indication: PRODUCT USED FOR UNKNOWN INDICATION
     Route: 065

REACTIONS (3)
  - Hypersensitivity [Recovered/Resolved]
  - Eye pruritus [Recovered/Resolved]
  - Oral pruritus [Recovered/Resolved]
